FAERS Safety Report 11671104 (Version 1)
Quarter: 2015Q4

REPORT INFORMATION
  Report Type: Report from Study
  Country: JP (occurrence: JP)
  Receive Date: 20151028
  Receipt Date: 20151028
  Transmission Date: 20160304
  Serious: Yes (Other)
  Sender: FDA-Public Use
  Company Number: JP-ROCHE-1651238

PATIENT
  Age: 55 Year
  Sex: Male

DRUGS (3)
  1. INTERFERON ALFA-2B [Suspect]
     Active Substance: INTERFERON ALFA-2B
     Indication: CHRONIC HEPATITIS C
     Dosage: 6 MILLION-10 MILLION UNITS OVER 14 CONSECUTIVE DAYS
     Route: 030
  2. RIBAVIRIN. [Suspect]
     Active Substance: RIBAVIRIN
     Indication: CHRONIC HEPATITIS C
     Dosage: 600-800MG EVERY DAY.
     Route: 048
  3. INTERFERON ALFA-2B [Suspect]
     Active Substance: INTERFERON ALFA-2B
     Dosage: 6 MILLION-10 MILLION UNITS OVER 3 TIMES A WEEK.
     Route: 030

REACTIONS (3)
  - Retinal exudates [Not Recovered/Not Resolved]
  - Retinal haemorrhage [Not Recovered/Not Resolved]
  - Retinopathy [Unknown]
